FAERS Safety Report 12780085 (Version 1)
Quarter: 2016Q3

REPORT INFORMATION
  Report Type: Spontaneous
  Country: US (occurrence: US)
  Receive Date: 20160926
  Receipt Date: 20160926
  Transmission Date: 20161109
  Serious: No
  Sender: FDA-Public Use
  Company Number: None

PATIENT
  Age: 64 Year
  Sex: Female
  Weight: 63.5 kg

DRUGS (6)
  1. CLOPIDOGREL [Concomitant]
     Active Substance: CLOPIDOGREL BISULFATE
  2. BOTOX [Suspect]
     Active Substance: ONABOTULINUMTOXINA
     Indication: MUSCLE SPASMS
     Dates: start: 20160202, end: 20160505
  3. ATORVASTATIN [Concomitant]
     Active Substance: ATORVASTATIN
  4. BACLOFEN. [Concomitant]
     Active Substance: BACLOFEN
  5. AMLODIPINE [Concomitant]
     Active Substance: AMLODIPINE BESYLATE
  6. IBUPROFEN. [Concomitant]
     Active Substance: IBUPROFEN

REACTIONS (8)
  - Grip strength decreased [None]
  - Muscle tightness [None]
  - Movement disorder [None]
  - Activities of daily living impaired [None]
  - Drug monitoring procedure not performed [None]
  - Muscle spasms [None]
  - Condition aggravated [None]
  - Musculoskeletal stiffness [None]

NARRATIVE: CASE EVENT DATE: 20160601
